FAERS Safety Report 13082117 (Version 2)
Quarter: 2019Q4

REPORT INFORMATION
  Report Type: Spontaneous
  Country: DE (occurrence: DE)
  Receive Date: 20170103
  Receipt Date: 20191216
  Transmission Date: 20200122
  Serious: Yes (Other)
  Sender: FDA-Public Use
  Company Number: DE-TEVA-723592GER

PATIENT
  Age: 40 Year
  Sex: Female
  Weight: 49.5 kg

DRUGS (7)
  1. RAMIPRIL. [Concomitant]
     Active Substance: RAMIPRIL
     Indication: HYPERTENSION
     Dosage: 2.5 MILLIGRAM DAILY;
     Route: 048
     Dates: start: 20151127, end: 20151230
  2. FOLSAN [Concomitant]
     Active Substance: FOLIC ACID
     Indication: PROPHYLAXIS OF NEURAL TUBE DEFECT
     Dosage: 5 MILLIGRAM DAILY;
     Route: 048
  3. METHYLDOPA. [Concomitant]
     Active Substance: METHYLDOPA
     Indication: HYPERTENSION
     Dosage: 1000 MILLIGRAM DAILY;
     Route: 048
     Dates: start: 20160105, end: 20160829
  4. FOLSAN [Concomitant]
     Active Substance: FOLIC ACID
     Dosage: .8 MILLIGRAM DAILY;
     Route: 048
  5. QUETIAPINE. [Suspect]
     Active Substance: QUETIAPINE
     Indication: BIPOLAR DISORDER
     Dosage: 500 MG PER DAY, UP TO 300 MG
     Route: 048
     Dates: start: 20151127, end: 20160829
  6. QUILONUM RETARD [Concomitant]
     Active Substance: LITHIUM CARBONATE
     Indication: BIPOLAR DISORDER
     Dosage: 450 MILLIGRAM DAILY;
     Route: 048
     Dates: start: 20151127, end: 20160829
  7. L-THYROXIN [Suspect]
     Active Substance: LEVOTHYROXINE SODIUM
     Indication: HYPOTHYROIDISM
     Dosage: 100 MICROGRAM DAILY;
     Route: 048
     Dates: start: 20151127, end: 20160829

REACTIONS (2)
  - Gestational diabetes [Recovered/Resolved]
  - Maternal exposure during pregnancy [Unknown]
